FAERS Safety Report 18291628 (Version 1)
Quarter: 2020Q3

REPORT INFORMATION
  Report Type: Spontaneous
  Country: JP (occurrence: JP)
  Receive Date: 20200921
  Receipt Date: 20200921
  Transmission Date: 20201103
  Serious: Yes (Other)
  Sender: FDA-Public Use
  Company Number: JP-PFIZER INC-2020358281

PATIENT
  Sex: Female

DRUGS (10)
  1. EPERISONE [Suspect]
     Active Substance: EPERISONE
     Indication: MUSCULOSKELETAL STIFFNESS
     Dosage: UNK
     Route: 048
  2. EPERISONE [Suspect]
     Active Substance: EPERISONE
     Indication: ARTHRALGIA
  3. LOXONIN [Suspect]
     Active Substance: LOXOPROFEN SODIUM
     Indication: ARTHRALGIA
  4. BONALON [Concomitant]
     Active Substance: ALENDRONATE SODIUM
     Indication: OSTEOPOROSIS
     Dosage: UNK
     Route: 048
     Dates: start: 202002
  5. EPERISONE [Suspect]
     Active Substance: EPERISONE
     Indication: COMPRESSION FRACTURE
  6. LYRICA [Suspect]
     Active Substance: PREGABALIN
     Indication: COMPRESSION FRACTURE
  7. LYRICA [Suspect]
     Active Substance: PREGABALIN
     Indication: ARTHRALGIA
     Dosage: 50 MG, 1X/DAY
     Route: 048
     Dates: start: 20200503, end: 20200831
  8. LOXONIN [Suspect]
     Active Substance: LOXOPROFEN SODIUM
     Indication: MUSCULOSKELETAL STIFFNESS
     Dosage: UNK
     Route: 048
     Dates: end: 20200831
  9. LOXONIN [Suspect]
     Active Substance: LOXOPROFEN SODIUM
     Indication: COMPRESSION FRACTURE
  10. LYRICA [Suspect]
     Active Substance: PREGABALIN
     Indication: MUSCULOSKELETAL STIFFNESS
     Dosage: 50 MG, 2X/DAY
     Route: 048
     Dates: start: 20200331, end: 20200502

REACTIONS (4)
  - Gait disturbance [Unknown]
  - Discomfort [Unknown]
  - Dyspnoea [Unknown]
  - Fracture [Unknown]

NARRATIVE: CASE EVENT DATE: 2020
